FAERS Safety Report 6894873-0 (Version None)
Quarter: 2010Q3

REPORT INFORMATION
  Report Type: 
  Country: None (occurrence: None)
  Receive Date: 20100802
  Receipt Date: 20100719
  Transmission Date: 20110219
  Serious: Yes (Other)
  Sender: FDA-Public Use
  Company Number: DE-CEPHALON-2010004012

PATIENT
  Sex: Female

DRUGS (3)
  1. TREANDA [Suspect]
     Route: 042
  2. RITUXIMAB [Suspect]
  3. ALLOPURINOL [Concomitant]

REACTIONS (3)
  - BLISTER [None]
  - ERYTHEMA [None]
  - OEDEMA PERIPHERAL [None]
